FAERS Safety Report 15204789 (Version 2)
Quarter: 2018Q3

REPORT INFORMATION
  Report Type: Spontaneous
  Country: US (occurrence: US)
  Receive Date: 20180726
  Receipt Date: 20180803
  Transmission Date: 20181010
  Serious: Yes (Other)
  Sender: FDA-Public Use
  Company Number: US-BEH-2018093083

PATIENT
  Age: 75 Year
  Sex: Female
  Weight: 62.59 kg

DRUGS (33)
  1. HIZENTRA [Suspect]
     Active Substance: HUMAN IMMUNOGLOBULIN G
     Indication: IMMUNODEFICIENCY COMMON VARIABLE
     Dosage: 19 G, BIW
     Route: 058
     Dates: start: 20180710
  2. HIZENTRA [Suspect]
     Active Substance: HUMAN IMMUNOGLOBULIN G
     Dosage: UNK
     Route: 058
  3. ALLEGRA [Concomitant]
     Active Substance: FEXOFENADINE HYDROCHLORIDE
  4. SINGULAIR [Concomitant]
     Active Substance: MONTELUKAST SODIUM
  5. ADVAIR HFA [Concomitant]
     Active Substance: FLUTICASONE PROPIONATE\SALMETEROL XINAFOATE
  6. VITAMIN C [Concomitant]
     Active Substance: ASCORBIC ACID
  7. LYSINE [Concomitant]
     Active Substance: LYSINE
  8. COENZYME Q10 [Concomitant]
     Active Substance: UBIDECARENONE
  9. OMEGA 3                            /01333901/ [Concomitant]
     Active Substance: FISH OIL\TOCOPHEROL
  10. DIPHENHYDRAMINE. [Concomitant]
     Active Substance: DIPHENHYDRAMINE
  11. VITAMIN D3 [Concomitant]
     Active Substance: CHOLECALCIFEROL
  12. NIACIN. [Concomitant]
     Active Substance: NIACIN
  13. BESIVANCE                          /06324101/ [Concomitant]
  14. VITAMIN B12 [Concomitant]
     Active Substance: CYANOCOBALAMIN
  15. MELATONIN [Concomitant]
     Active Substance: MELATONIN
  16. CALCIUM CITRATE + D [Concomitant]
  17. HIZENTRA [Suspect]
     Active Substance: HUMAN IMMUNOGLOBULIN G
     Dosage: UNK
     Route: 058
  18. HIZENTRA [Suspect]
     Active Substance: HUMAN IMMUNOGLOBULIN G
     Dosage: UNK
     Route: 058
  19. ACETAMINOPHEN. [Concomitant]
     Active Substance: ACETAMINOPHEN
  20. HYDROXYTRYPTOPHAN [Concomitant]
     Active Substance: OXITRIPTAN
  21. XOLAIR [Concomitant]
     Active Substance: OMALIZUMAB
  22. BUSPIRONE [Concomitant]
     Active Substance: BUSPIRONE HYDROCHLORIDE
  23. PROBIOTIC                          /06395501/ [Concomitant]
     Active Substance: BIFIDOBACTERIUM ANIMALIS LACTIS
  24. LIDOCAINE. [Concomitant]
     Active Substance: LIDOCAINE
  25. EPINEPHRINE. [Concomitant]
     Active Substance: EPINEPHRINE
  26. IPRATROPIUM BROMIDE AND ALBUTEROL SULFATE [Concomitant]
     Active Substance: ALBUTEROL SULFATE\IPRATROPIUM BROMIDE
  27. ALBUTEROL                          /00139501/ [Concomitant]
     Active Substance: ALBUTEROL
  28. LOSARTAN. [Concomitant]
     Active Substance: LOSARTAN
  29. SIMVASTATIN. [Concomitant]
     Active Substance: SIMVASTATIN
  30. FLONASE [Concomitant]
     Active Substance: FLUTICASONE PROPIONATE
  31. B COMPLEX                          /00212701/ [Concomitant]
     Active Substance: NIACINAMIDE\PYRIDOXINE\RIBOFLAVIN\THIAMINE
  32. ZINC. [Concomitant]
     Active Substance: ZINC
  33. AMINO 2700 [Concomitant]

REACTIONS (1)
  - Diplopia [Unknown]

NARRATIVE: CASE EVENT DATE: 201807
